FAERS Safety Report 17246531 (Version 3)
Quarter: 2020Q3

REPORT INFORMATION
  Report Type: Report from Study
  Country: CA (occurrence: CA)
  Receive Date: 20200108
  Receipt Date: 20200805
  Transmission Date: 20201102
  Serious: Yes (Other)
  Sender: FDA-Public Use
  Company Number: NVSC2019CA018999

PATIENT
  Sex: Female

DRUGS (3)
  1. TAFINLAR [Suspect]
     Active Substance: DABRAFENIB MESYLATE
     Indication: MALIGNANT MELANOMA
     Dosage: 150 MG, QD
     Route: 048
     Dates: start: 20190525
  2. MEKINIST [Suspect]
     Active Substance: TRAMETINIB DIMETHYL SULFOXIDE
     Indication: MALIGNANT MELANOMA
     Dosage: 2 MG, QD
     Route: 048
     Dates: start: 20190525, end: 20200201
  3. TAFINLAR [Suspect]
     Active Substance: DABRAFENIB MESYLATE
     Dosage: 300 MG
     Route: 048
     Dates: end: 20200201

REACTIONS (15)
  - Lip swelling [Recovered/Resolved]
  - Rash [Unknown]
  - Oropharyngeal discomfort [Recovered/Resolved]
  - Myalgia [Unknown]
  - Drug ineffective [Unknown]
  - Dysphagia [Recovered/Resolved]
  - Pruritus [Unknown]
  - Hepatic enzyme increased [Unknown]
  - Pyrexia [Unknown]
  - Arthralgia [Unknown]
  - Hepatitis [Unknown]
  - Paraesthesia [Unknown]
  - Chills [Unknown]
  - Hyperhidrosis [Unknown]
  - Nasopharyngitis [Unknown]

NARRATIVE: CASE EVENT DATE: 2019
